FAERS Safety Report 12986266 (Version 1)
Quarter: 2016Q4

REPORT INFORMATION
  Report Type: Spontaneous
  Country: US (occurrence: US)
  Receive Date: 20161130
  Receipt Date: 20161130
  Transmission Date: 20170207
  Serious: Yes (Other)
  Sender: FDA-Public Use
  Company Number: US-ELI_LILLY_AND_COMPANY-US201611010116

PATIENT
  Age: 67 Year
  Sex: Female

DRUGS (16)
  1. NEXIUM [Concomitant]
     Active Substance: ESOMEPRAZOLE MAGNESIUM
  2. FLONAZE [Concomitant]
  3. VICTOZA [Suspect]
     Active Substance: LIRAGLUTIDE
     Indication: DIABETES MELLITUS
     Dosage: UNK, UNKNOWN
     Route: 065
  4. IRON METAL [Concomitant]
  5. REGLAN [Concomitant]
     Active Substance: METOCLOPRAMIDE HYDROCHLORIDE
  6. VITAMIN D [Concomitant]
     Active Substance: CHOLECALCIFEROL
  7. TOPROL XL [Concomitant]
     Active Substance: METOPROLOL SUCCINATE
  8. POTASSIUM [Concomitant]
     Active Substance: POTASSIUM
  9. CELEBREX [Concomitant]
     Active Substance: CELECOXIB
  10. PRESERVISION AREDS 2 [Concomitant]
  11. LASIX [Concomitant]
     Active Substance: FUROSEMIDE
  12. OXYBUTYNIN [Concomitant]
     Active Substance: OXYBUTYNIN
  13. HUMALOG [Suspect]
     Active Substance: INSULIN LISPRO
     Indication: DIABETES MELLITUS
     Dosage: UNK, TID
     Route: 065
  14. LANTUS [Suspect]
     Active Substance: INSULIN GLARGINE
     Indication: DIABETES MELLITUS
     Dosage: UNK, UNKNOWN
     Route: 065
  15. CALCIUM CITRAMATE [Concomitant]
  16. LIPITOR [Concomitant]
     Active Substance: ATORVASTATIN CALCIUM

REACTIONS (8)
  - Hypersensitivity [Unknown]
  - Diverticulitis [Unknown]
  - Ulcer [Unknown]
  - Peripheral swelling [Unknown]
  - Macular degeneration [Unknown]
  - Incontinence [Unknown]
  - Arthritis [Unknown]
  - Cardiac disorder [Unknown]
